FAERS Safety Report 12081688 (Version 1)
Quarter: 2016Q1

REPORT INFORMATION
  Report Type: Spontaneous
  Country: US (occurrence: US)
  Receive Date: 20160216
  Receipt Date: 20160216
  Transmission Date: 20160526
  Serious: No
  Sender: FDA-Public Use
  Company Number: US-PERRIGO-15US004429

PATIENT
  Age: 5 Year
  Sex: Female
  Weight: 16.78 kg

DRUGS (1)
  1. IBUPROFEN. [Suspect]
     Active Substance: IBUPROFEN
     Indication: PRODUCTIVE COUGH
     Dosage: 100 MG, SINGLE
     Route: 048
     Dates: start: 20150424, end: 20150424

REACTIONS (2)
  - Restlessness [Unknown]
  - Off label use [Recovered/Resolved]

NARRATIVE: CASE EVENT DATE: 20150424
